FAERS Safety Report 8357807-8 (Version None)
Quarter: 2012Q2

REPORT INFORMATION
  Report Type: 
  Country: None (occurrence: None)
  Receive Date: 20120514
  Receipt Date: 20120507
  Transmission Date: 20120825
  Serious: Yes (Other)
  Sender: FDA-Public Use
  Company Number: JP-BRISTOL-MYERS SQUIBB COMPANY-16576548

PATIENT

DRUGS (1)
  1. MAXIPIME [Suspect]
     Indication: FEBRILE NEUTROPENIA

REACTIONS (1)
  - ALTERED STATE OF CONSCIOUSNESS [None]
